FAERS Safety Report 10254114 (Version 1)
Quarter: 2014Q2

REPORT INFORMATION
  Report Type: Spontaneous
  Country: CH (occurrence: CH)
  Receive Date: 20140623
  Receipt Date: 20140623
  Transmission Date: 20141212
  Serious: Yes (Life-Threatening)
  Sender: FDA-Public Use
  Company Number: PHHY2014CH073889

PATIENT
  Age: 83 Year
  Sex: Female
  Weight: 58.2 kg

DRUGS (10)
  1. QUETIAPINE [Suspect]
     Indication: AGITATION
     Dosage: 12.5 MG, TID
     Route: 048
     Dates: start: 20131223, end: 20140102
  2. METFIN [Suspect]
     Indication: DIABETES MELLITUS
     Dosage: 500 MG, QD
     Route: 048
     Dates: start: 2011
  3. HALDOL [Suspect]
     Indication: AGITATION
     Dosage: 1 MG, BID
     Route: 048
     Dates: start: 20131223
  4. ASPIRIN [Concomitant]
     Indication: THROMBOSIS PROPHYLAXIS
     Dosage: 100 MG, QD
     Route: 048
     Dates: start: 20140213
  5. PLAVIX [Concomitant]
     Indication: EMBOLIC STROKE
     Dosage: 75 MG, QD
     Route: 048
  6. RISPERDAL [Concomitant]
     Indication: ABNORMAL BEHAVIOUR
     Dosage: 1 MG, BID
     Route: 048
     Dates: start: 20140213
  7. SIMVASTATINE [Concomitant]
     Indication: ARTERIOSCLEROSIS
     Dosage: 40 MG, QD
     Route: 048
     Dates: start: 20140210
  8. TOREM [Concomitant]
     Indication: CARDIAC FAILURE
     Dosage: 10 MG, QD
     Route: 048
     Dates: start: 2006
  9. DISTRANEURIN [Concomitant]
     Indication: AGITATION
     Dosage: 300 MG, QD
     Route: 048
     Dates: start: 20140121
  10. ARANESP [Concomitant]
     Indication: ANAEMIA
     Dosage: 80 UG, QMO
     Route: 058
     Dates: start: 2013

REACTIONS (1)
  - Agranulocytosis [Recovered/Resolved]
